FAERS Safety Report 4654758-7 (Version None)
Quarter: 2005Q2

REPORT INFORMATION
  Report Type: 
  Country: None (occurrence: None)
  Receive Date: 20050505
  Receipt Date: 20050505
  Transmission Date: 20051028
  Serious: Yes (Other)
  Sender: FDA-Public Use
  Company Number: None

PATIENT
  Age: 37 Year
  Sex: Female
  Weight: 60 kg

DRUGS (7)
  1. REMODULIN [Suspect]
     Indication: PULMONARY HYPERTENSION
     Dosage: 66NG/KG/MIN   CONT    SUBCUTANEO
     Route: 058
     Dates: start: 20000101, end: 20050401
  2. LASIX [Concomitant]
  3. PREVACID [Concomitant]
  4. DIGOXIN [Concomitant]
  5. COUMADIN [Concomitant]
  6. PERCOCET [Concomitant]
  7. COLACE [Concomitant]

REACTIONS (9)
  - DIFFICULTY IN WALKING [None]
  - INJECTED LIMB MOBILITY DECREASED [None]
  - INJECTION SITE ERYTHEMA [None]
  - INJECTION SITE HAEMORRHAGE [None]
  - INJECTION SITE INFECTION [None]
  - INJECTION SITE PAIN [None]
  - INJECTION SITE REACTION [None]
  - PAIN [None]
  - SKIN DISCOLOURATION [None]
